FAERS Safety Report 8827197 (Version 1)
Quarter: 2012Q4

REPORT INFORMATION
  Report Type: 
  Country: US (occurrence: US)
  Receive Date: 20121008
  Receipt Date: 20121008
  Transmission Date: 20130627
  Serious: No
  Sender: FDA-Public Use
  Company Number: US-BIOGENIDEC-2012BI041550

PATIENT
  Age: 63 None
  Sex: Female

DRUGS (9)
  1. AVONEX [Suspect]
     Indication: MULTIPLE SCLEROSIS
     Route: 030
     Dates: start: 20020701, end: 20060403
  2. AVONEX [Suspect]
     Indication: MULTIPLE SCLEROSIS
     Route: 030
     Dates: start: 20120731, end: 20120731
  3. AVONEX [Suspect]
     Indication: MULTIPLE SCLEROSIS
     Route: 030
     Dates: start: 20120807, end: 20120907
  4. AVONEX [Suspect]
     Indication: MULTIPLE SCLEROSIS
     Route: 030
     Dates: start: 20120814, end: 20120814
  5. AVONEX [Suspect]
     Indication: MULTIPLE SCLEROSIS
     Route: 030
     Dates: start: 20120821, end: 20120821
  6. AVONEX [Suspect]
     Indication: MULTIPLE SCLEROSIS
     Route: 030
     Dates: start: 20120827, end: 20120905
  7. ASPIRIN [Concomitant]
     Indication: PREMEDICATION
     Dates: start: 2002
  8. GABAPENTIN [Concomitant]
     Indication: NEURALGIA
  9. GABAPENTIN [Concomitant]
     Indication: MYALGIA

REACTIONS (8)
  - Injection site hypersensitivity [Recovered/Resolved]
  - Injection site erythema [Recovered/Resolved]
  - Musculoskeletal disorder [Recovered/Resolved]
  - Pain in extremity [Recovered/Resolved]
  - Fall [Recovered/Resolved]
  - Myalgia [Recovered/Resolved]
  - Neuralgia [Unknown]
  - Injection site swelling [Recovered/Resolved]
